FAERS Safety Report 9322008 (Version 3)
Quarter: 2013Q4

REPORT INFORMATION
  Report Type: Spontaneous
  Country: US (occurrence: None)
  Receive Date: 20130529
  Receipt Date: 20131028
  Transmission Date: 20140711
  Serious: Yes (Other)
  Sender: FDA-Public Use
  Company Number: 2013US001640

PATIENT
  Age: 53 Year
  Sex: Male
  Weight: 62 kg

DRUGS (2)
  1. ICLUSIG [Suspect]
     Indication: CHRONIC MYELOID LEUKAEMIA
     Route: 048
     Dates: start: 20130311, end: 2013
  2. SYNTHROID (LEVOTHYROXINE SODIUM) [Concomitant]

REACTIONS (11)
  - Platelet count abnormal [None]
  - Body temperature fluctuation [None]
  - Headache [None]
  - Asthenia [None]
  - Dyspnoea [None]
  - Pain [None]
  - Haemoglobin decreased [None]
  - Haematocrit decreased [None]
  - Chronic myeloid leukaemia [None]
  - Malignant neoplasm progression [None]
  - Disease progression [None]
